FAERS Safety Report 4968099-1 (Version None)
Quarter: 2006Q2

REPORT INFORMATION
  Report Type: 
  Country: None (occurrence: None)
  Receive Date: 20060410
  Receipt Date: 20060330
  Transmission Date: 20061013
  Serious: Yes (Other)
  Sender: FDA-Public Use
  Company Number: US-ROCHE-442861

PATIENT
  Age: 52 Year
  Sex: Female
  Weight: 79.4 kg

DRUGS (6)
  1. PEGASYS [Suspect]
     Indication: HEPATITIS C
     Route: 058
     Dates: start: 20060303
  2. RIBAVIRIN [Suspect]
     Indication: HEPATITIS C
     Dosage: 600 MG/AM AND 600MG/PM.
     Route: 048
     Dates: start: 20060303
  3. VIVELLE-DOT [Concomitant]
     Indication: HORMONE REPLACEMENT THERAPY
     Route: 048
  4. TESTOSTERONE [Concomitant]
     Indication: HORMONE REPLACEMENT THERAPY
     Route: 061
  5. DITROPAN [Concomitant]
     Route: 048
  6. VITAMIN SUPPLEMENTS [Concomitant]
     Dosage: VITAMIN SUPPLEMENTS INCLUDING VITAMIN C, E, SOY, FOLIC ACID AND FLAX.

REACTIONS (7)
  - ANAEMIA [None]
  - BLOOD ELECTROLYTES DECREASED [None]
  - DEHYDRATION [None]
  - INSOMNIA [None]
  - MIGRAINE [None]
  - NAUSEA [None]
  - VOMITING [None]
